FAERS Safety Report 9052637 (Version 2)
Quarter: 2013Q2

REPORT INFORMATION
  Report Type: Report from Study
  Country: CA (occurrence: CA)
  Receive Date: 20130207
  Receipt Date: 20130401
  Transmission Date: 20140414
  Serious: Yes (Hospitalization)
  Sender: FDA-Public Use
  Company Number: CA-ABBOTT-13P-028-1046663-00

PATIENT
  Sex: Female

DRUGS (1)
  1. HUMIRA [Suspect]
     Indication: ANKYLOSING SPONDYLITIS
     Route: 058
     Dates: start: 20100613

REACTIONS (6)
  - Concussion [Unknown]
  - Fall [Recovered/Resolved]
  - Facial bones fracture [Unknown]
  - Cervical vertebral fracture [Unknown]
  - Laceration [Unknown]
  - Contusion [Unknown]
